FAERS Safety Report 12188141 (Version 1)
Quarter: 2016Q1

REPORT INFORMATION
  Report Type: Report from Study
  Country: ES (occurrence: ES)
  Receive Date: 20160317
  Receipt Date: 20160317
  Transmission Date: 20160526
  Serious: Yes (Hospitalization, Other)
  Sender: FDA-Public Use
  Company Number: ES-GLAXOSMITHKLINE-ES2016034671

PATIENT
  Age: 70 Year
  Sex: Male

DRUGS (8)
  1. ZINNAT [Suspect]
     Active Substance: CEFUROXIME AXETIL
     Indication: RESPIRATORY TRACT INFECTION
     Dosage: 1-0-1
     Route: 048
     Dates: start: 20141205, end: 20141209
  2. CARDYL [Concomitant]
     Active Substance: ATORVASTATIN CALCIUM
     Indication: DYSLIPIDAEMIA
     Dosage: 0-0-1
     Route: 048
     Dates: start: 20130202
  3. PARIET [Concomitant]
     Active Substance: RABEPRAZOLE SODIUM
     Indication: PROPHYLAXIS AGAINST GASTROINTESTINAL ULCER
     Dosage: 1 CP
     Route: 048
     Dates: start: 20130202
  4. TROMALYT (ACETYLSALICYLIC ACID) [Concomitant]
     Indication: MYOCARDIAL ISCHAEMIA
     Dosage: 1-0-0
     Route: 048
     Dates: start: 20130202
  5. AMOXICILLIN AND CLAVULANATE POTASSIUM [Suspect]
     Active Substance: AMOXICILLIN\CLAVULANATE POTASSIUM
     Indication: RESPIRATORY TRACT INFECTION
     Dosage: 1-1-1
     Route: 048
     Dates: start: 20141201, end: 20141204
  6. BALZAK PLUS [Concomitant]
     Active Substance: AMLODIPINE BESYLATE\HYDROCHLOROTHIAZIDE\OLMESARTAN MEDOXOMIL
     Indication: HYPERTENSION
     Dosage: 1CP
     Route: 048
     Dates: start: 20130202
  7. LEXATIN [Concomitant]
     Active Substance: BROMAZEPAM
     Indication: INSOMNIA
     Dosage: 0-0-1
     Route: 048
     Dates: start: 20130202
  8. UROLOSIN [Concomitant]
     Active Substance: TAMSULOSIN HYDROCHLORIDE
     Indication: BENIGN PROSTATIC HYPERPLASIA
     Dosage: 1 CP
     Route: 048
     Dates: start: 2005

REACTIONS (5)
  - Rhabdomyolysis [Recovered/Resolved]
  - Acute prerenal failure [Recovered/Resolved]
  - Hepatitis acute [Recovered/Resolved]
  - Troponin increased [Recovered/Resolved]
  - Diarrhoea haemorrhagic [Recovered/Resolved]

NARRATIVE: CASE EVENT DATE: 20141209
